FAERS Safety Report 8143933-5 (Version None)
Quarter: 2012Q1

REPORT INFORMATION
  Report Type: 
  Country: None (occurrence: None)
  Receive Date: 20120217
  Receipt Date: 20120214
  Transmission Date: 20120608
  Serious: Yes (Hospitalization)
  Sender: FDA-Public Use
  Company Number: US-TEVA-321882USA

PATIENT
  Sex: Female

DRUGS (1)
  1. BENDAMUSTINE [Suspect]
     Route: 042

REACTIONS (9)
  - ASPARTATE AMINOTRANSFERASE INCREASED [None]
  - ALANINE AMINOTRANSFERASE INCREASED [None]
  - VOMITING [None]
  - NEUTROPENIA [None]
  - PANCYTOPENIA [None]
  - PYREXIA [None]
  - HEPATOTOXICITY [None]
  - NAUSEA [None]
  - CHILLS [None]
